FAERS Safety Report 8567293 (Version 3)
Quarter: 2014Q1

REPORT INFORMATION
  Report Type: Spontaneous
  Country: US (occurrence: US)
  Receive Date: 20120517
  Receipt Date: 20140225
  Transmission Date: 20141002
  Serious: Yes (Other)
  Sender: FDA-Public Use
  Company Number: US-GLAXOSMITHKLINE-A0977170A

PATIENT
  Age: 72 Year
  Sex: Male
  Weight: 106.8 kg

DRUGS (2)
  1. AVODART [Suspect]
     Indication: PROPHYLAXIS
     Dosage: .5MG PER DAY
     Route: 048
     Dates: start: 20120426
  2. ENBREL [Concomitant]

REACTIONS (2)
  - Prostatic haemorrhage [Not Recovered/Not Resolved]
  - Prostate cancer [Unknown]
